FAERS Safety Report 4285768-X (Version None)
Quarter: 2004Q1

REPORT INFORMATION
  Report Type: 
  Country: None (occurrence: None)
  Receive Date: 20040204
  Receipt Date: 20040204
  Transmission Date: 20041129
  Serious: No
  Sender: FDA-Public Use
  Company Number: None

PATIENT
  Sex: Male
  Weight: 78 kg

DRUGS (1)
  1. ETANERCEPT [Suspect]
     Indication: RHEUMATOID ARTHRITIS
     Dosage: 25 MG TWICE PER SUBCUTANEOUS
     Route: 058
     Dates: start: 20030818, end: 20030929

REACTIONS (2)
  - RASH [None]
  - URTICARIA [None]
